FAERS Safety Report 11200456 (Version 1)
Quarter: 2015Q2

REPORT INFORMATION
  Report Type: Spontaneous
  Country: US (occurrence: US)
  Receive Date: 20150618
  Receipt Date: 20150618
  Transmission Date: 20150821
  Serious: No
  Sender: FDA-Public Use
  Company Number: US-ASTRAZENECA-2015SE56373

PATIENT
  Sex: Female

DRUGS (5)
  1. ELECTROLYTES [Concomitant]
     Active Substance: ELECTROLYTES NOS
  2. PRILOSEC [Suspect]
     Active Substance: OMEPRAZOLE MAGNESIUM
     Dosage: 40 MG
     Route: 048
  3. PEDIALYTE [Concomitant]
     Active Substance: DEXTROSE\ELECTROLYTES NOS
  4. EMERGEN-C [Concomitant]
     Active Substance: VITAMINS
  5. PRILOSEC [Suspect]
     Active Substance: OMEPRAZOLE MAGNESIUM
     Dosage: 40 MG, GENERIC
     Route: 048

REACTIONS (6)
  - Magnesium deficiency [Unknown]
  - Condition aggravated [Unknown]
  - Nasopharyngitis [Unknown]
  - Calcium deficiency [Unknown]
  - Dyskinesia [Unknown]
  - Muscle spasms [Unknown]

NARRATIVE: CASE EVENT DATE: 20150608
